FAERS Safety Report 25716324 (Version 1)
Quarter: 2025Q3

REPORT INFORMATION
  Report Type: Spontaneous
  Country: US (occurrence: None)
  Receive Date: 20250814
  Receipt Date: 20250814
  Transmission Date: 20251021
  Serious: No
  Sender: FDA-CTU
  Company Number: None

PATIENT
  Age: 18 Year
  Sex: Male

DRUGS (1)
  1. DROPERIDOL [Suspect]
     Active Substance: DROPERIDOL

REACTIONS (1)
  - Patient restraint [None]

NARRATIVE: CASE EVENT DATE: 20240430
